FAERS Safety Report 6297257-1 (Version None)
Quarter: 2009Q3

REPORT INFORMATION
  Report Type: 
  Country: None (occurrence: None)
  Receive Date: 20090804
  Receipt Date: 20090804
  Transmission Date: 20100115
  Serious: No
  Sender: FDA-Public Use
  Company Number: None

PATIENT
  Age: 78 Year
  Sex: Male
  Weight: 115 kg

DRUGS (7)
  1. ACYCLOVIR [Suspect]
     Indication: HERPES ZOSTER
     Dosage: 1145 MG X 1500MG Q H X 2; 500 MG Q H X 2; 400 MG X
  2. CLINDAMYCIN [Concomitant]
  3. ASPIRIN [Concomitant]
  4. LOVENOX [Concomitant]
  5. . [Concomitant]
  6. SYNTHROID [Concomitant]
  7. FELODIPINE [Concomitant]

REACTIONS (1)
  - BLOOD CREATININE INCREASED [None]
